FAERS Safety Report 6468532-2 (Version None)
Quarter: 2009Q4

REPORT INFORMATION
  Report Type: 
  Country: None (occurrence: None)
  Receive Date: 20091203
  Receipt Date: 20091126
  Transmission Date: 20100525
  Serious: Yes (Other)
  Sender: FDA-Public Use
  Company Number: FR-JNJFOC-20091104543

PATIENT
  Sex: Female

DRUGS (1)
  1. TAVANIC [Suspect]
     Indication: SALPINGITIS
     Route: 065

REACTIONS (2)
  - CONTRAINDICATION TO MEDICAL TREATMENT [None]
  - EPILEPSY [None]
